FAERS Safety Report 13898418 (Version 1)
Quarter: 2017Q3

REPORT INFORMATION
  Report Type: Spontaneous
  Country: DE (occurrence: DE)
  Receive Date: 20170824
  Receipt Date: 20170824
  Transmission Date: 20171127
  Serious: Yes (Other)
  Sender: FDA-Public Use
  Company Number: DE-AMGEN-DEUSP2017117572

PATIENT
  Age: 68 Year
  Sex: Female
  Weight: 110 kg

DRUGS (1)
  1. PROLIA [Suspect]
     Active Substance: DENOSUMAB
     Indication: OSTEOPOROSIS POSTMENOPAUSAL
     Dosage: 60 MG, UNK
     Route: 058
     Dates: start: 20170623

REACTIONS (25)
  - Urinary bladder haemorrhage [Unknown]
  - Cataract operation [Unknown]
  - Sleep disorder [Unknown]
  - Muscle spasms [Unknown]
  - Ear pain [Unknown]
  - Urinary incontinence [Unknown]
  - Insomnia [Not Recovered/Not Resolved]
  - Constipation [Not Recovered/Not Resolved]
  - Dry mouth [Not Recovered/Not Resolved]
  - Chills [Unknown]
  - Discomfort [Unknown]
  - Hordeolum [Unknown]
  - Skin disorder [Unknown]
  - Bone pain [Not Recovered/Not Resolved]
  - Dysphagia [Unknown]
  - Abdominal discomfort [Unknown]
  - Arthralgia [Not Recovered/Not Resolved]
  - Nausea [Not Recovered/Not Resolved]
  - Weight increased [Not Recovered/Not Resolved]
  - Eye disorder [Unknown]
  - Asthenia [Unknown]
  - Hand fracture [Unknown]
  - Weight decreased [Unknown]
  - Lymphoedema [Unknown]
  - Vaginal haemorrhage [Unknown]

NARRATIVE: CASE EVENT DATE: 2017
